FAERS Safety Report 5075263-2 (Version None)
Quarter: 2006Q3

REPORT INFORMATION
  Report Type: 
  Country: None (occurrence: None)
  Receive Date: 20060809
  Receipt Date: 20051109
  Transmission Date: 20061208
  Serious: No
  Sender: FDA-Public Use
  Company Number: US-AMGEN-KDL157600

PATIENT
  Age: 75 Year
  Sex: Female
  Weight: 74.9 kg

DRUGS (4)
  1. PROCRIT [Suspect]
     Indication: RENAL FAILURE CHRONIC
     Route: 058
     Dates: start: 20051001, end: 20051001
  2. ZOCOR [Concomitant]
  3. ACTOS [Concomitant]
  4. FUROSEMIDE [Concomitant]

REACTIONS (1)
  - OEDEMA PERIPHERAL [None]
